FAERS Safety Report 4715866-5 (Version None)
Quarter: 2005Q3

REPORT INFORMATION
  Report Type: 
  Country: None (occurrence: None)
  Receive Date: 20050718
  Receipt Date: 20050706
  Transmission Date: 20060218
  Serious: Yes (Other)
  Sender: FDA-Public Use
  Company Number: US-ROCHE-410162

PATIENT
  Age: 19 Year
  Sex: Female

DRUGS (2)
  1. ACCUTANE [Suspect]
     Route: 065
     Dates: start: 19850615, end: 19850615
  2. ACCUTANE [Suspect]
     Route: 065
     Dates: start: 20050615, end: 20050615

REACTIONS (9)
  - CHAPPED LIPS [None]
  - DEPRESSION [None]
  - DRY EYE [None]
  - DRY SKIN [None]
  - HAEMORRHAGE [None]
  - MOOD ALTERED [None]
  - PARANOIA [None]
  - SKIN FISSURES [None]
  - UNEVALUABLE EVENT [None]
